FAERS Safety Report 5148382-X (Version None)
Quarter: 2006Q4

REPORT INFORMATION
  Report Type: 
  Country: None (occurrence: None)
  Receive Date: 20061106
  Receipt Date: 20061012
  Transmission Date: 20070319
  Serious: Yes (Other)
  Sender: FDA-Public Use
  Company Number: 2006129941

PATIENT
  Age: 80 Year
  Sex: Female

DRUGS (3)
  1. PRAZOSIN GITS [Suspect]
     Indication: HYPERTENSION
     Dosage: 2 MG (1 MG,2 IN 1 D)
     Dates: start: 20060701
  2. ZANIDIP  (LERCANIDIPINE HYDROCHLORIDE) [Concomitant]
  3. GLUCOSAMINE [Concomitant]

REACTIONS (3)
  - ERYTHEMA [None]
  - OEDEMA PERIPHERAL [None]
  - SKIN WARM [None]
